FAERS Safety Report 9289305 (Version 2)
Quarter: 2013Q2

REPORT INFORMATION
  Report Type: Spontaneous
  Country: US (occurrence: None)
  Receive Date: 20130510
  Receipt Date: 20130524
  Transmission Date: 20140414
  Serious: Yes (Hospitalization)
  Sender: FDA-Public Use
  Company Number: TCI2013A02328

PATIENT
  Age: 64 Year
  Sex: Female

DRUGS (6)
  1. LIOVEL COMBINATION TABLETS (ALOGLIPTIN BENZOATE, PIOGLITAZONE HYDROCHLORIDE) [Suspect]
     Indication: DIABETES MELLITUS
     Dosage: 1 TAB (1TAB, 1 IN 1D) ORAL
     Route: 048
     Dates: start: 20130326, end: 20130419
  2. TAKEPRON  OD TABLETS 15 (LANSOPRAZOLE) [Concomitant]
  3. AMARYL (GLIMEPIRIDE) [Suspect]
  4. ATELEC (CLINIDIPINE) [Concomitant]
  5. XYZAL [Concomitant]
  6. LIPITOR (ATORVASTATIN CALCIUM) [Concomitant]

REACTIONS (4)
  - Drug eruption [None]
  - Oculomucocutaneous syndrome [None]
  - Oedema mouth [None]
  - Pruritus [None]
